FAERS Safety Report 6134845-7 (Version None)
Quarter: 2009Q1

REPORT INFORMATION
  Report Type: 
  Country: None (occurrence: None)
  Receive Date: 20090327
  Receipt Date: 20090319
  Transmission Date: 20090719
  Serious: Yes (Other)
  Sender: FDA-Public Use
  Company Number: NL-JNJFOC-20090305922

PATIENT
  Sex: Male
  Weight: 79 kg

DRUGS (6)
  1. RISPERDAL [Suspect]
     Indication: SCHIZOPHRENIA
     Route: 065
  2. ABILIFY [Concomitant]
     Route: 065
  3. XANAX [Concomitant]
     Dosage: AS NECESSARY
     Route: 065
  4. PAROXETINE HCL [Concomitant]
     Route: 065
  5. METFORMINE HCL [Concomitant]
     Route: 065
  6. ENALAPRIL [Concomitant]
     Route: 065

REACTIONS (1)
  - TYPE 2 DIABETES MELLITUS [None]
